FAERS Safety Report 7793306-X (Version None)
Quarter: 2011Q3

REPORT INFORMATION
  Report Type: 
  Country: None (occurrence: None)
  Receive Date: 20110930
  Receipt Date: 20110930
  Transmission Date: 20111222
  Serious: Yes (Other)
  Sender: FDA-Public Use
  Company Number: None

PATIENT
  Age: 51 Year
  Sex: Female
  Weight: 47.6277 kg

DRUGS (1)
  1. METRONIDAZOLE [Suspect]
     Indication: DIARRHOEA
     Dosage: 3 PER DAY ORAL
     Route: 048

REACTIONS (7)
  - RASH [None]
  - SKIN BURNING SENSATION [None]
  - URTICARIA [None]
  - SKIN ULCER [None]
  - PRURITUS [None]
  - INFLAMMATION [None]
  - JOINT SWELLING [None]
